FAERS Safety Report 7389969-3 (Version None)
Quarter: 2011Q2

REPORT INFORMATION
  Report Type: 
  Country: None (occurrence: None)
  Receive Date: 20110401
  Receipt Date: 20110308
  Transmission Date: 20111010
  Serious: No
  Sender: FDA-Public Use
  Company Number: US-B.I. PHARMACEUTICALS,INC./RIDGEFIELD-2011-BP-07367BP

PATIENT
  Sex: Female

DRUGS (7)
  1. ACETAMINOPHEN [Concomitant]
     Indication: ARTHRITIS
     Dosage: 325 MG
     Route: 048
  2. NORVASC [Concomitant]
     Indication: HYPERTENSION
     Dosage: 5 MG
     Route: 048
  3. ATIVAN [Concomitant]
     Indication: ANXIETY
     Dosage: 2.5 MG
     Route: 048
  4. B-COMPLEX/MVI [Concomitant]
     Indication: PROPHYLAXIS
     Route: 048
  5. ATENOLOL [Concomitant]
     Indication: ATRIAL FIBRILLATION
     Dosage: 25 MG
     Route: 048
  6. PRADAXA [Suspect]
     Indication: ATRIAL FIBRILLATION
     Dosage: 75 MG
     Route: 048
     Dates: start: 20110221, end: 20110307
  7. PRADAXA [Suspect]
     Dosage: 150 MG
     Route: 048
     Dates: start: 20110308

REACTIONS (2)
  - HEADACHE [None]
  - FAECES DISCOLOURED [None]
